FAERS Safety Report 23229400 (Version 1)
Quarter: 2023Q4

REPORT INFORMATION
  Report Type: Spontaneous
  Country: FR (occurrence: FR)
  Receive Date: 20231127
  Receipt Date: 20231127
  Transmission Date: 20240109
  Serious: Yes (Hospitalization)
  Sender: FDA-Public Use
  Company Number: FR-drreddys-SPO/FRA/23/0187018

PATIENT
  Age: 15 Year
  Sex: Female

DRUGS (1)
  1. TREPROSTINIL SODIUM [Suspect]
     Active Substance: TREPROSTINIL SODIUM
     Indication: Product used for unknown indication
     Dosage: IV INFUSION VIA PUMP
     Route: 042
     Dates: start: 20231103, end: 20231111

REACTIONS (4)
  - Peripheral swelling [Unknown]
  - Injection site pain [Unknown]
  - Pain in extremity [Recovered/Resolved]
  - Incorrect drug administration rate [Unknown]

NARRATIVE: CASE EVENT DATE: 20231103
